FAERS Safety Report 7088263-8 (Version None)
Quarter: 2010Q4

REPORT INFORMATION
  Report Type: 
  Country: None (occurrence: None)
  Receive Date: 20101108
  Receipt Date: 20101020
  Transmission Date: 20110411
  Serious: Yes (Other)
  Sender: FDA-Public Use
  Company Number: US-BAYER-201023024NA

PATIENT
  Age: 21 Year
  Sex: Female
  Weight: 118 kg

DRUGS (4)
  1. YAZ [Suspect]
     Indication: PRODUCT USED FOR UNKNOWN INDICATION
     Dosage: FOUR  MONTHS SUPPLY OF YAZ SAMPLES GIVEN
     Route: 048
     Dates: start: 20090113
  2. YASMIN [Suspect]
     Indication: CONTRACEPTION
     Route: 048
     Dates: start: 20051018
  3. YASMIN [Suspect]
     Route: 048
     Dates: start: 20080401, end: 20080801
  4. NSAID'S [Concomitant]
     Dates: start: 20020801

REACTIONS (6)
  - ABDOMINAL PAIN UPPER [None]
  - BILIARY COLIC [None]
  - CHOLECYSTITIS CHRONIC [None]
  - CHOLELITHIASIS [None]
  - GALLBLADDER PAIN [None]
  - NAUSEA [None]
